FAERS Safety Report 11847211 (Version 1)
Quarter: 2015Q4

REPORT INFORMATION
  Report Type: Spontaneous
  Country: US (occurrence: US)
  Receive Date: 20151217
  Receipt Date: 20151217
  Transmission Date: 20160305
  Serious: No
  Sender: FDA-Public Use
  Company Number: US-ROCHE-1522864

PATIENT
  Age: 2 Month
  Sex: Male

DRUGS (3)
  1. TAMIFLU [Suspect]
     Active Substance: OSELTAMIVIR PHOSPHATE
     Dosage: THIRD DOSE PRIOR TO ADVERSE EVENTS
     Route: 048
     Dates: start: 20150113
  2. TAMIFLU [Suspect]
     Active Substance: OSELTAMIVIR PHOSPHATE
     Dosage: LAST DOSE LAST NIGHT
     Route: 048
     Dates: start: 20150115
  3. TAMIFLU [Suspect]
     Active Substance: OSELTAMIVIR PHOSPHATE
     Indication: INFLUENZA
     Route: 048
     Dates: start: 20150112, end: 20150115

REACTIONS (6)
  - Diarrhoea [Unknown]
  - Feeling abnormal [Unknown]
  - Insomnia [Unknown]
  - Irritability [Unknown]
  - Vomiting [Unknown]
  - Abdominal pain upper [Unknown]

NARRATIVE: CASE EVENT DATE: 20150113
